FAERS Safety Report 18294165 (Version 1)
Quarter: 2020Q3

REPORT INFORMATION
  Report Type: Spontaneous
  Country: US (occurrence: US)
  Receive Date: 20200922
  Receipt Date: 20200922
  Transmission Date: 20201103
  Serious: Yes (Other)
  Sender: FDA-Public Use
  Company Number: None

PATIENT
  Sex: Female

DRUGS (1)
  1. ATORVASTATIN  20MG [Suspect]
     Active Substance: ATORVASTATIN

REACTIONS (1)
  - Muscle spasms [None]
